FAERS Safety Report 14740922 (Version 1)
Quarter: 2018Q2

REPORT INFORMATION
  Report Type: Spontaneous
  Country: CO (occurrence: CO)
  Receive Date: 20180410
  Receipt Date: 20180410
  Transmission Date: 20180711
  Serious: Yes (Other)
  Sender: FDA-Public Use
  Company Number: CO-TOLMAR, INC.-2018CO003523

PATIENT

DRUGS (1)
  1. ELIGARD [Suspect]
     Active Substance: LEUPROLIDE ACETATE
     Indication: PROSTATE CANCER
     Dosage: 45 MG, CYCLIC
     Route: 058
     Dates: start: 20180212, end: 20180212

REACTIONS (2)
  - Appendicitis perforated [Recovering/Resolving]
  - Appendicitis [Recovering/Resolving]
